FAERS Safety Report 6209663-1 (Version None)
Quarter: 2009Q2

REPORT INFORMATION
  Report Type: 
  Country: None (occurrence: None)
  Receive Date: 20090601
  Receipt Date: 20090521
  Transmission Date: 20091009
  Serious: Yes (Death, Hospitalization, Other)
  Sender: FDA-Public Use
  Company Number: JP-BAYER-200911197BYL

PATIENT
  Age: 65 Year
  Sex: Male
  Weight: 67 kg

DRUGS (32)
  1. FLUDARA [Suspect]
     Indication: ALLOGENIC BONE MARROW TRANSPLANTATION THERAPY
     Dosage: AS USED: 50 MG  UNIT DOSE: 50 MG
     Route: 042
     Dates: start: 20080611, end: 20080616
  2. DENOSINE [Suspect]
     Route: 041
  3. BUSULFEX [Concomitant]
     Indication: ALLOGENIC BONE MARROW TRANSPLANTATION THERAPY
     Dosage: AS USED: 99.5 MG
     Route: 042
     Dates: start: 20080611, end: 20080615
  4. SANDIMMUNE [Concomitant]
     Indication: PROPHYLAXIS AGAINST GRAFT VERSUS HOST DISEASE
     Dosage: AS USED: 220 MG
     Route: 042
     Dates: start: 20080619, end: 20080703
  5. SANDIMMUNE [Concomitant]
     Dosage: AS USED: 230 MG
     Route: 042
     Dates: start: 20080704, end: 20080704
  6. SANDIMMUNE [Concomitant]
     Dosage: AS USED: 240 MG
     Route: 042
     Dates: start: 20080705, end: 20080709
  7. NEORAL [Concomitant]
     Indication: PROPHYLAXIS AGAINST GRAFT VERSUS HOST DISEASE
     Dosage: TOTAL DAILY DOSE: 400 MG
     Route: 048
     Dates: start: 20080710, end: 20080711
  8. NEORAL [Concomitant]
     Dosage: TOTAL DAILY DOSE: 120 MG
     Route: 048
     Dates: start: 20080714, end: 20080714
  9. NEORAL [Concomitant]
     Dosage: TOTAL DAILY DOSE: 260 MG
     Route: 048
     Dates: start: 20080723, end: 20080724
  10. NEORAL [Concomitant]
     Dosage: TOTAL DAILY DOSE: 125 MG
     Route: 048
     Dates: start: 20080804, end: 20080804
  11. NEORAL [Concomitant]
     Dosage: TOTAL DAILY DOSE: 125 MG
     Route: 048
     Dates: start: 20080730, end: 20080730
  12. NEORAL [Concomitant]
     Dosage: TOTAL DAILY DOSE: 125 MG
     Route: 048
     Dates: start: 20080728, end: 20080728
  13. NEORAL [Concomitant]
     Dosage: TOTAL DAILY DOSE: 150 MG
     Route: 048
     Dates: start: 20080725, end: 20080725
  14. NEORAL [Concomitant]
     Dosage: TOTAL DAILY DOSE: 160 MG
     Route: 048
     Dates: start: 20080722, end: 20080722
  15. NEORAL [Concomitant]
     Dosage: TOTAL DAILY DOSE: 200 MG
     Route: 048
     Dates: start: 20080717, end: 20080721
  16. NEORAL [Concomitant]
     Dosage: TOTAL DAILY DOSE: 100 MG
     Route: 048
     Dates: start: 20080716, end: 20080716
  17. NEORAL [Concomitant]
     Dosage: TOTAL DAILY DOSE: 250 MG
     Route: 048
     Dates: start: 20080729, end: 20080729
  18. NEORAL [Concomitant]
     Dosage: TOTAL DAILY DOSE: 300 MG
     Route: 048
     Dates: start: 20080726, end: 20080727
  19. NEORAL [Concomitant]
     Dosage: TOTAL DAILY DOSE: 250 MG
     Route: 048
     Dates: start: 20080805, end: 20080807
  20. NEORAL [Concomitant]
     Dosage: TOTAL DAILY DOSE: 270 MG
     Route: 048
     Dates: start: 20080731, end: 20080803
  21. NEORAL [Concomitant]
     Dosage: TOTAL DAILY DOSE: 160 MG
     Route: 048
     Dates: start: 20080826, end: 20080901
  22. NEORAL [Concomitant]
     Dosage: TOTAL DAILY DOSE: 80 MG
     Route: 048
     Dates: start: 20080825, end: 20080825
  23. NEORAL [Concomitant]
     Dosage: TOTAL DAILY DOSE: 400 MG
     Route: 048
     Dates: start: 20080809, end: 20080824
  24. NEORAL [Concomitant]
     Dosage: TOTAL DAILY DOSE: 100 MG
     Route: 048
     Dates: start: 20080808, end: 20080808
  25. NEORAL [Concomitant]
     Dosage: TOTAL DAILY DOSE: 240 MG
     Route: 048
     Dates: start: 20080715, end: 20080715
  26. NEORAL [Concomitant]
     Dosage: TOTAL DAILY DOSE: 300 MG
     Route: 048
     Dates: start: 20080713, end: 20080713
  27. METHOTREXATE [Concomitant]
     Indication: MYELODYSPLASTIC SYNDROME
     Dosage: AS USED: 11.8 MG
     Route: 042
     Dates: start: 20080625, end: 20080625
  28. METHOTREXATE [Concomitant]
     Dosage: AS USED: 11.8 MG
     Route: 042
     Dates: start: 20080623, end: 20080623
  29. METHOTREXATE [Concomitant]
     Dosage: AS USED: 16.8 MG
     Route: 042
     Dates: start: 20080621, end: 20080621
  30. VALPROATE SODIUM [Concomitant]
     Indication: CONVULSION PROPHYLAXIS
     Dosage: AS USED: 400 MG
     Route: 048
     Dates: start: 20080610, end: 20080616
  31. CONCENTRATED RED CELLS [Concomitant]
     Indication: PACKED RED BLOOD CELL TRANSFUSION
     Route: 042
     Dates: start: 20080612, end: 20080616
  32. PLATELET CONCENTRAT [Concomitant]
     Indication: PLATELET TRANSFUSION
     Route: 042
     Dates: start: 20080613, end: 20080912

REACTIONS (5)
  - CYSTITIS HAEMORRHAGIC [None]
  - ENGRAFT FAILURE [None]
  - FEBRILE NEUTROPENIA [None]
  - HERPES DERMATITIS [None]
  - MYELODYSPLASTIC SYNDROME [None]
